FAERS Safety Report 17313189 (Version 1)
Quarter: 2020Q1

REPORT INFORMATION
  Report Type: Spontaneous
  Country: US (occurrence: US)
  Receive Date: 20200107
  Receipt Date: 20200107
  Transmission Date: 20200409
  Serious: No
  Sender: FDA-Public Use
  Company Number: None

PATIENT
  Age: 62 Year
  Sex: Female

DRUGS (4)
  1. IBRANCE [Suspect]
     Active Substance: PALBOCICLIB
     Route: 048
     Dates: start: 201912
  2. ANASTROZOLE. [Concomitant]
     Active Substance: ANASTROZOLE
  3. FASLODEX [Concomitant]
     Active Substance: FULVESTRANT
  4. ZOLOFT [Concomitant]
     Active Substance: SERTRALINE HYDROCHLORIDE

REACTIONS (2)
  - Fatigue [None]
  - Nasal congestion [None]

NARRATIVE: CASE EVENT DATE: 20200106
